FAERS Safety Report 19135038 (Version 1)
Quarter: 2021Q2

REPORT INFORMATION
  Report Type: Spontaneous
  Country: US (occurrence: US)
  Receive Date: 20210414
  Receipt Date: 20210414
  Transmission Date: 20210717
  Serious: No
  Sender: FDA-Public Use
  Company Number: US-KINIKSA PHARMACEUTICALS LTD.-2020KPU000399

PATIENT
  Age: 25 Year
  Sex: Female

DRUGS (3)
  1. COLCHICINE. [Suspect]
     Active Substance: COLCHICINE
     Indication: PRODUCT USED FOR UNKNOWN INDICATION
     Route: 065
  2. ARCALYST [Suspect]
     Active Substance: RILONACEPT
     Indication: PERICARDITIS
     Dosage: BOTH ARMS
     Route: 058
     Dates: start: 20200604
  3. ARCALYST [Suspect]
     Active Substance: RILONACEPT
     Dosage: RIGHT ARM
     Route: 058
     Dates: start: 20200611, end: 20200611

REACTIONS (5)
  - Nausea [Recovered/Resolved]
  - Injection site erythema [Not Recovered/Not Resolved]
  - Headache [Recovered/Resolved]
  - Off label use [Unknown]
  - Injection site pain [Recovered/Resolved]

NARRATIVE: CASE EVENT DATE: 202006
